FAERS Safety Report 25763695 (Version 1)
Quarter: 2025Q3

REPORT INFORMATION
  Report Type: Spontaneous
  Country: US (occurrence: US)
  Receive Date: 20250905
  Receipt Date: 20250905
  Transmission Date: 20251021
  Serious: No
  Sender: DOMPE FARMACEUTICI
  Company Number: US-FARMAPROD-202411-3965

PATIENT
  Age: 66 Year
  Sex: Female

DRUGS (6)
  1. OXERVATE [Suspect]
     Active Substance: CENEGERMIN-BKBJ
     Indication: Neurotrophic keratopathy
     Route: 047
     Dates: start: 20241025, end: 20241213
  2. OXERVATE [Suspect]
     Active Substance: CENEGERMIN-BKBJ
     Indication: Keratitis
     Route: 047
     Dates: start: 20250213
  3. NEBIVOLOL [Concomitant]
     Active Substance: NEBIVOLOL
  4. VALSARTAN AND HYDROCHLOROTHIAZIDE [Concomitant]
     Active Substance: HYDROCHLOROTHIAZIDE\VALSARTAN
  5. ELIQUIS [Concomitant]
     Active Substance: APIXABAN
  6. ARMOUR THYROID [Concomitant]
     Active Substance: THYROID, PORCINE

REACTIONS (5)
  - Eye pain [Not Recovered/Not Resolved]
  - Accidental overdose [Unknown]
  - Periorbital pain [Unknown]
  - Eyelid pain [Unknown]
  - Off label use [Unknown]

NARRATIVE: CASE EVENT DATE: 20241103
